FAERS Safety Report 24785251 (Version 1)
Quarter: 2024Q4

REPORT INFORMATION
  Report Type: Spontaneous
  Country: FR (occurrence: FR)
  Receive Date: 20241228
  Receipt Date: 20241228
  Transmission Date: 20250114
  Serious: Yes (Other)
  Sender: RECKITT BENCKISER
  Company Number: None

PATIENT

DRUGS (2)
  1. BUPRENORPHINE [Suspect]
     Active Substance: BUPRENORPHINE
     Indication: Drug dependence
     Dosage: 3 MILLIGRAM, QD
     Route: 064
     Dates: start: 20231129, end: 20240815
  2. XANAX [Suspect]
     Active Substance: ALPRAZOLAM
     Indication: Anxiety
     Dosage: UNK
     Route: 064
     Dates: start: 20231129, end: 20240815

REACTIONS (2)
  - Foetal malnutrition [Not Recovered/Not Resolved]
  - Foetal exposure during pregnancy [Recovered/Resolved]

NARRATIVE: CASE EVENT DATE: 20231129
